FAERS Safety Report 19964819 (Version 2)
Quarter: 2021Q4

REPORT INFORMATION
  Report Type: Spontaneous
  Country: US (occurrence: None)
  Receive Date: 20211018
  Receipt Date: 20211210
  Transmission Date: 20220303
  Serious: No
  Sender: FDA-Public Use
  Company Number: 2021A753368

PATIENT
  Sex: Female
  Weight: 104.3 kg

DRUGS (3)
  1. BYDUREON [Suspect]
     Active Substance: EXENATIDE
     Indication: Type 2 diabetes mellitus
     Route: 065
     Dates: start: 2011, end: 202102
  2. FASENRA [Suspect]
     Active Substance: BENRALIZUMAB
     Route: 058
  3. OZEMPIC [Concomitant]
     Active Substance: SEMAGLUTIDE
     Route: 065
     Dates: start: 202108

REACTIONS (13)
  - Injection site pain [Unknown]
  - Burning sensation [Unknown]
  - Feeling abnormal [Unknown]
  - Rash [Unknown]
  - Insulin resistance [Unknown]
  - Diarrhoea [Unknown]
  - Abdominal pain upper [Unknown]
  - Nausea [Unknown]
  - Needle issue [Unknown]
  - Product quality issue [Unknown]
  - COVID-19 [Unknown]
  - Tremor [Unknown]
  - Device leakage [Unknown]
